FAERS Safety Report 6014750-7 (Version None)
Quarter: 2008Q4

REPORT INFORMATION
  Report Type: 
  Country: None (occurrence: None)
  Receive Date: 20081219
  Receipt Date: 20081205
  Transmission Date: 20090506
  Serious: Yes (Other)
  Sender: FDA-Public Use
  Company Number: JP-GENENTECH-269561

PATIENT
  Sex: Female
  Weight: 30.8 kg

DRUGS (6)
  1. AVASTIN [Suspect]
     Indication: COLON CANCER
     Dosage: 5 MG/KG, QD
     Route: 041
     Dates: start: 20070824, end: 20080619
  2. OXALIPLATIN [Suspect]
     Indication: COLON CANCER
     Dosage: 85 MG/M2, QD
     Route: 041
     Dates: start: 20070824, end: 20080306
  3. FLUOROURACIL [Suspect]
     Indication: COLON CANCER
     Dosage: 400 MG/M2, QD
     Route: 042
     Dates: start: 20070824, end: 20080307
  4. LEUCOVORIN CALCIUM [Suspect]
     Indication: COLON CANCER
     Dosage: 200 MG/M2, QD
     Route: 041
     Dates: start: 20070824, end: 20080306
  5. BROTIZOLAM [Concomitant]
     Indication: DRUG USE FOR UNKNOWN INDICATION
     Dosage: UNK
     Dates: start: 20070824, end: 20070905
  6. INSULIN [Concomitant]
     Indication: DIABETES MELLITUS

REACTIONS (6)
  - BLOOD GLUCOSE INCREASED [None]
  - CONVULSION [None]
  - EMBOLISM VENOUS [None]
  - HAEMORRHAGE INTRACRANIAL [None]
  - HYDROCEPHALUS [None]
  - HYPOGLYCAEMIA [None]
